FAERS Safety Report 23575336 (Version 2)
Quarter: 2024Q1

REPORT INFORMATION
  Report Type: Spontaneous
  Country: JP (occurrence: JP)
  Receive Date: 20240228
  Receipt Date: 20240313
  Transmission Date: 20240410
  Serious: Yes (Other)
  Sender: FDA-Public Use
  Company Number: JP-AMGEN-JPNSP2024036638

PATIENT

DRUGS (2)
  1. BLINCYTO [Suspect]
     Active Substance: BLINATUMOMAB
     Indication: B precursor type acute leukaemia
     Dosage: 9 MICROGRAM, CENTRAL VENOUS (CV), ADMINISTRATION DURATION FOR THE LOW DOSE AS THE INITIATION DOSE OF
     Route: 042
     Dates: start: 20240209, end: 20240215
  2. BLINCYTO [Suspect]
     Active Substance: BLINATUMOMAB
     Dosage: UNK, CONTINUING, DOSING BECAME 24-HOUR ADMINISTRATION, CENTRAL VENOUS (CV), DOSE INCREASED
     Route: 042
     Dates: start: 202402

REACTIONS (1)
  - Vascular device occlusion [Recovered/Resolved]

NARRATIVE: CASE EVENT DATE: 20240201
